FAERS Safety Report 15552824 (Version 1)
Quarter: 2018Q4

REPORT INFORMATION
  Report Type: Spontaneous
  Country: NL (occurrence: NL)
  Receive Date: 20181025
  Receipt Date: 20181025
  Transmission Date: 20190205
  Serious: Yes (Other)
  Sender: FDA-Public Use
  Company Number: NL-009507513-1810NLD007031

PATIENT
  Sex: Male

DRUGS (2)
  1. SINEMET [Suspect]
     Active Substance: CARBIDOPA\LEVODOPA
     Dosage: 1 TABLET OF 62.5 MG IN THE MORNING (QAM)
     Route: 048
  2. SINEMET [Suspect]
     Active Substance: CARBIDOPA\LEVODOPA
     Dosage: 2 TABLETS (125 MG) IN THE MORNING, 3 TABLETS (125 MG) DURING THE DAY AND 2 TABLETS (125 MG) IN THE E
     Route: 048

REACTIONS (4)
  - Therapeutic response unexpected [Unknown]
  - Brain neoplasm [Unknown]
  - Overdose [Unknown]
  - Fall [Unknown]
